FAERS Safety Report 7953583-9 (Version None)
Quarter: 2011Q4

REPORT INFORMATION
  Report Type: 
  Country: None (occurrence: None)
  Receive Date: 20111202
  Receipt Date: 20111125
  Transmission Date: 20120403
  Serious: Yes (Death)
  Sender: FDA-Public Use
  Company Number: CA-PFIZER INC-K200900455

PATIENT
  Age: 83 Year
  Sex: Female

DRUGS (20)
  1. ALLOPURINOL [Suspect]
     Dosage: UNK
  2. LACTULOSE [Suspect]
     Dosage: UNK
  3. TYLENOL W/ CODEINE NO. 2 [Suspect]
     Dosage: UNK
  4. TYLENOL W/ CODEINE NO. 3 [Suspect]
  5. IBUPROFEN [Suspect]
     Dosage: UNK
  6. SERTRALINE [Suspect]
     Dosage: UNK
  7. NIFEDIPINE [Suspect]
     Dosage: UNK
  8. HYDROCHLOROTHIAZIDE [Suspect]
     Dosage: UNK
  9. TERAZOSIN [Suspect]
     Dosage: UNK
  10. GLYCERIN /00200601/ [Suspect]
     Dosage: UNK
  11. MOTRIN IB [Suspect]
     Dosage: UNK
  12. ALTACE [Suspect]
     Dosage: UNK
  13. METOPROLOL [Suspect]
     Dosage: UNK
  14. LIPITOR [Suspect]
     Dosage: UNK
  15. PLAVIX [Suspect]
     Dosage: UNK
  16. ROBAXACET [Suspect]
     Dosage: UNK
  17. ASPIRIN [Suspect]
     Dosage: UNK
  18. QUININE [Suspect]
     Dosage: UNK
  19. TEMAZEPAM [Suspect]
     Dosage: UNK
  20. BETASERON [Suspect]
     Dosage: UNK
     Route: 058

REACTIONS (6)
  - MUSCULOSKELETAL STIFFNESS [None]
  - BACK PAIN [None]
  - JAUNDICE [None]
  - MALAISE [None]
  - ABDOMINAL PAIN [None]
  - PANCREATIC CARCINOMA [None]
